FAERS Safety Report 9756654 (Version 1)
Quarter: 2013Q4

REPORT INFORMATION
  Report Type: Other
  Country: ET (occurrence: ET)
  Receive Date: 20131213
  Receipt Date: 20131213
  Transmission Date: 20140711
  Serious: Yes (Death, Other)
  Sender: FDA-Public Use
  Company Number: ET-BRISTOL-MYERS SQUIBB COMPANY-19886787

PATIENT
  Sex: 0

DRUGS (4)
  1. EFAVIRENZ [Suspect]
     Route: 064
  2. ZIDOVUDINE [Suspect]
     Route: 064
  3. LAMIVUDINE [Suspect]
     Route: 064
  4. NEVIRAPINE [Suspect]
     Route: 064

REACTIONS (2)
  - Foetal death [Fatal]
  - Encephalocele [Unknown]
